FAERS Safety Report 6233706-2 (Version None)
Quarter: 2009Q2

REPORT INFORMATION
  Report Type: 
  Country: None (occurrence: None)
  Receive Date: 20090617
  Receipt Date: 20090609
  Transmission Date: 20091009
  Serious: Yes (Death)
  Sender: FDA-Public Use
  Company Number: JP-MERCK-0906USA02198

PATIENT
  Age: 10 Month
  Sex: Male

DRUGS (6)
  1. PEPCID [Suspect]
     Route: 048
  2. CORTICOSTEROIDS (UNSPECIFIED) [Concomitant]
     Route: 065
  3. MEROPEN [Suspect]
     Route: 065
  4. ROCEPHIN [Suspect]
     Route: 065
  5. CLAFORAN [Suspect]
     Route: 065
  6. MIRACLID [Concomitant]
     Route: 065

REACTIONS (5)
  - DRUG RASH WITH EOSINOPHILIA AND SYSTEMIC SYMPTOMS [None]
  - HEPATIC FAILURE [None]
  - HUMAN HERPES VIRUS 6 SEROLOGY POSITIVE [None]
  - PLATELET COUNT DECREASED [None]
  - SEPSIS [None]
